FAERS Safety Report 7868974-4 (Version None)
Quarter: 2011Q4

REPORT INFORMATION
  Report Type: 
  Country: None (occurrence: None)
  Receive Date: 20111021
  Receipt Date: 20111014
  Transmission Date: 20120403
  Serious: Yes (Other)
  Sender: FDA-Public Use
  Company Number: 2011SP042245

PATIENT
  Sex: Male

DRUGS (5)
  1. BEFACT FORTE [Concomitant]
  2. NOXAFIL [Suspect]
     Indication: ASPERGILLOSIS
     Dosage: 5 ML, QID
     Dates: start: 20110609
  3. BUMETANIDE [Concomitant]
  4. ASAFLOW [Concomitant]
  5. PANTOPRAZOLE [Concomitant]

REACTIONS (1)
  - NEUROPATHY PERIPHERAL [None]
